FAERS Safety Report 5839060-X (Version None)
Quarter: 2008Q3

REPORT INFORMATION
  Report Type: 
  Country: None (occurrence: None)
  Receive Date: 20080808
  Receipt Date: 20080729
  Transmission Date: 20090109
  Serious: Yes (Hospitalization, Other)
  Sender: FDA-Public Use
  Company Number: IE-ABBOTT-08P-229-0459340-00

PATIENT
  Sex: Female

DRUGS (15)
  1. HUMIRA [Suspect]
     Indication: CROHN'S DISEASE
     Route: 058
     Dates: start: 20080403
  2. PREDNISONE [Concomitant]
     Indication: CROHN'S DISEASE
     Dates: start: 20070301
  3. AZATHIOPRINE [Concomitant]
     Indication: CROHN'S DISEASE
  4. MESALAMINE [Concomitant]
     Indication: CROHN'S DISEASE
  5. ACETAMINOPHEN [Concomitant]
     Indication: PAIN
     Dosage: 1-2 DOSES
     Dates: start: 20080601
  6. ESTRADIOL [Concomitant]
     Indication: HORMONE REPLACEMENT THERAPY
     Dates: start: 20040101
  7. CALCIUM CARBONATE [Concomitant]
     Indication: PROPHYLAXIS
     Dates: start: 20050303
  8. CALCIUM CARBONATE [Concomitant]
     Indication: STEROID THERAPY
  9. POTASSIUM CHLORIDE [Concomitant]
     Indication: BLOOD POTASSIUM DECREASED
     Dates: start: 20061208
  10. OMEPRAZOLE SODIUM [Concomitant]
     Indication: DYSPEPSIA
     Dates: start: 20061201
  11. OMEPRAZOLE SODIUM [Concomitant]
     Indication: GASTRITIS
     Dates: start: 20080613
  12. OMEPRAZOLE SODIUM [Concomitant]
     Indication: DUODENITIS
  13. MEDISED [Concomitant]
     Indication: PAIN
     Dates: start: 20080611
  14. AMLODIPINE BESYLATE [Concomitant]
     Indication: HYPERTENSION
     Dates: start: 20080611, end: 20080611
  15. CALCITONIN SALMON [Concomitant]
     Indication: WEIGHT DECREASED
     Dates: start: 20061201

REACTIONS (1)
  - CHOLELITHIASIS [None]
